FAERS Safety Report 4287483-5 (Version None)
Quarter: 2004Q1

REPORT INFORMATION
  Report Type: 
  Country: None (occurrence: None)
  Receive Date: 20040205
  Receipt Date: 20040128
  Transmission Date: 20041129
  Serious: Yes (Hospitalization)
  Sender: FDA-Public Use
  Company Number: US-JNJFOC-20040105972

PATIENT
  Age: 89 Year
  Sex: Male

DRUGS (2)
  1. REMINYL [Suspect]
     Indication: MEMORY IMPAIRMENT
     Dosage: 16 MG, 3 IN 1 DAY, ORAL
     Route: 048
     Dates: start: 20030101
  2. BLOOD THINNERS BLOOD AND RELATED PRODUCTS [Concomitant]

REACTIONS (6)
  - ANAEMIA [None]
  - ATRIAL FIBRILLATION [None]
  - CEREBROVASCULAR ACCIDENT [None]
  - DRUG INEFFECTIVE [None]
  - DYSPEPSIA [None]
  - WEIGHT DECREASED [None]
